FAERS Safety Report 4560267-6 (Version None)
Quarter: 2005Q1

REPORT INFORMATION
  Report Type: 
  Country: None (occurrence: None)
  Receive Date: 20050120
  Receipt Date: 20050120
  Transmission Date: 20050727
  Serious: Yes (Hospitalization)
  Sender: FDA-Public Use
  Company Number: None

PATIENT
  Age: 79 Year
  Sex: Female
  Weight: 72.6 kg

DRUGS (9)
  1. WARFARIN SODIUM [Suspect]
     Indication: ATRIAL FIBRILLATION
     Dosage: 4 MG PO QHS CHRONIC
     Route: 048
  2. COUMADIN [Concomitant]
  3. TOPROL-XL [Concomitant]
  4. CLONAZEPAM [Concomitant]
  5. SINGULAIR [Concomitant]
  6. MECLIZINE [Concomitant]
  7. XALATAN [Concomitant]
  8. CALCIUM GLUCONATE [Concomitant]
  9. ACTONEL [Concomitant]

REACTIONS (3)
  - CEREBRAL HAEMORRHAGE [None]
  - DYSPHAGIA [None]
  - INTERNATIONAL NORMALISED RATIO INCREASED [None]
